FAERS Safety Report 10062677 (Version 2)
Quarter: 2015Q2

REPORT INFORMATION
  Report Type: Spontaneous
  Country: US (occurrence: US)
  Receive Date: 20140407
  Receipt Date: 20150413
  Transmission Date: 20150821
  Serious: Yes (Death, Hospitalization, Other)
  Sender: FDA-Public Use
  Company Number: US-009507513-1404USA003572

PATIENT
  Sex: Female
  Weight: 61.22 kg

DRUGS (2)
  1. JANUVIA [Suspect]
     Active Substance: SITAGLIPTIN PHOSPHATE
     Dosage: 100 MG, QD
     Route: 048
     Dates: start: 20100616, end: 20121008
  2. JANUVIA [Suspect]
     Active Substance: SITAGLIPTIN PHOSPHATE
     Indication: TYPE 2 DIABETES MELLITUS
     Dosage: 50 MG, QD
     Route: 048
     Dates: start: 20100528, end: 20100715

REACTIONS (20)
  - Candida infection [Unknown]
  - Constipation [Unknown]
  - Anxiety [Unknown]
  - Gait disturbance [Unknown]
  - Vitamin D deficiency [Unknown]
  - Cholecystitis [Unknown]
  - Metastases to liver [Unknown]
  - Anaemia [Unknown]
  - Hysterectomy [Unknown]
  - Diverticulum intestinal [Unknown]
  - Transient ischaemic attack [Unknown]
  - Hepatic failure [Unknown]
  - Pancreatitis [Unknown]
  - Hyperammonaemia [Unknown]
  - Osteoporosis [Unknown]
  - Pancreatic carcinoma metastatic [Fatal]
  - Hypothyroidism [Unknown]
  - Type 1 diabetes mellitus [Unknown]
  - Biopsy kidney [Unknown]
  - Ascites [Unknown]

NARRATIVE: CASE EVENT DATE: 201104
